FAERS Safety Report 15517542 (Version 2)
Quarter: 2018Q4

REPORT INFORMATION
  Report Type: Spontaneous
  Country: GB (occurrence: GB)
  Receive Date: 20181017
  Receipt Date: 20181031
  Transmission Date: 20190205
  Serious: Yes (Other)
  Sender: FDA-Public Use
  Company Number: GB-MYLANLABS-2018M1077151

PATIENT
  Age: 33 Year
  Sex: Female

DRUGS (2)
  1. FENTANYL. [Suspect]
     Active Substance: FENTANYL
     Indication: EPIDURAL ANAESTHESIA
     Dosage: ADMINISTERED WITH BUPIVACAINE IN 10ML OF SOLUTION. OVERALL 2 BOLUSES WERE REQUIRED WITH EXCELLENT...
     Route: 008
  2. BUPIVACAINE. [Suspect]
     Active Substance: BUPIVACAINE
     Indication: EPIDURAL ANAESTHESIA
     Dosage: ADMINISTERED WITH FENTANYL IN 10ML OF SOLUTION. OVERALL 2 BOLUSES WERE REQUIRED WITH EXCELLENT AN...
     Route: 008

REACTIONS (5)
  - Tinnitus [Recovered/Resolved]
  - Hemiparesis [Recovered/Resolved]
  - Maternal exposure during pregnancy [Recovered/Resolved]
  - Normal newborn [Recovered/Resolved]
  - Headache [Recovered/Resolved]
